FAERS Safety Report 6349580-X (Version None)
Quarter: 2009Q3

REPORT INFORMATION
  Report Type: 
  Country: None (occurrence: None)
  Receive Date: 20090911
  Receipt Date: 20090831
  Transmission Date: 20100115
  Serious: Yes (Other)
  Sender: FDA-Public Use
  Company Number: US-PFIZER INC-2009256159

PATIENT
  Sex: Female

DRUGS (4)
  1. CHANTIX [Suspect]
     Indication: SMOKING CESSATION THERAPY
     Dosage: 1 MG, 2X/DAY
     Route: 048
     Dates: start: 20090810
  2. PHENERGAN [Concomitant]
     Indication: NAUSEA
  3. PHENERGAN [Concomitant]
     Indication: VOMITING
  4. DILAUDID [Concomitant]

REACTIONS (5)
  - HEADACHE [None]
  - MALAISE [None]
  - NAUSEA [None]
  - SURGERY [None]
  - VOMITING [None]
